FAERS Safety Report 6020707-2 (Version None)
Quarter: 2008Q4

REPORT INFORMATION
  Report Type: 
  Country: None (occurrence: None)
  Receive Date: 20081223
  Receipt Date: 20081223
  Transmission Date: 20090506
  Serious: Yes (Hospitalization)
  Sender: FDA-Public Use
  Company Number: None

PATIENT
  Sex: Female
  Weight: 84.5 kg

DRUGS (1)
  1. ZOLEDRONIC ACID [Suspect]
     Dosage: 4 MG

REACTIONS (8)
  - BREAST CANCER METASTATIC [None]
  - CHEST PAIN [None]
  - DEHYDRATION [None]
  - DRUG INEFFECTIVE [None]
  - HYPERTENSION [None]
  - HYPOKALAEMIA [None]
  - NAUSEA [None]
  - VOMITING [None]
